FAERS Safety Report 6957390-5 (Version None)
Quarter: 2010Q3

REPORT INFORMATION
  Report Type: 
  Country: None (occurrence: None)
  Receive Date: 20100831
  Receipt Date: 20100818
  Transmission Date: 20110219
  Serious: Yes (Other)
  Sender: FDA-Public Use
  Company Number: PHHY2010JP55935

PATIENT
  Age: 54 Year
  Sex: Female

DRUGS (2)
  1. GLEEVEC [Suspect]
     Indication: ACUTE LYMPHOCYTIC LEUKAEMIA
     Route: 048
  2. MULTIPLE CHEMOTHERAPY [Concomitant]

REACTIONS (2)
  - BONE MARROW FAILURE [None]
  - NAUSEA [None]
